FAERS Safety Report 8242215-0 (Version None)
Quarter: 2012Q1

REPORT INFORMATION
  Report Type: 
  Country: None (occurrence: None)
  Receive Date: 20120329
  Receipt Date: 20120321
  Transmission Date: 20120608
  Serious: Yes (Other)
  Sender: FDA-Public Use
  Company Number: CH-US-EMD SERONO, INC.-7114748

PATIENT
  Sex: Male
  Weight: 65 kg

DRUGS (3)
  1. ALGIFOR [Concomitant]
     Indication: ADVERSE EVENT
     Route: 048
     Dates: start: 20120117
  2. ACETAMINOPHEN [Concomitant]
     Indication: ADVERSE EVENT
     Route: 048
     Dates: start: 20111212, end: 20120117
  3. REBIF [Suspect]
     Indication: MULTIPLE SCLEROSIS
     Route: 058
     Dates: start: 20111212

REACTIONS (3)
  - BLOOD URINE PRESENT [None]
  - DYSURIA [None]
  - URETERITIS [None]
